FAERS Safety Report 7085648-0 (Version None)
Quarter: 2010Q4

REPORT INFORMATION
  Report Type: 
  Country: None (occurrence: None)
  Receive Date: 20101027
  Receipt Date: 20101017
  Transmission Date: 20110411
  Serious: Yes (Other)
  Sender: FDA-Public Use
  Company Number: 8053098

PATIENT
  Sex: Female

DRUGS (4)
  1. KEPPRA [Suspect]
     Indication: EPILEPSY
     Dosage: 2000 MG DAILY TRANSPLACENTAL
     Route: 064
     Dates: end: 20090807
  2. FOLIC ACID [Concomitant]
  3. PRENATAL VITAMINS /01549301/ [Concomitant]
  4. CALCIUM [Concomitant]

REACTIONS (7)
  - BREECH PRESENTATION [None]
  - CAESAREAN SECTION [None]
  - CAFE AU LAIT SPOTS [None]
  - FOETAL GROWTH RESTRICTION [None]
  - MATERNAL DRUGS AFFECTING FOETUS [None]
  - NEUROFIBROMATOSIS [None]
  - SMALL FOR DATES BABY [None]
